FAERS Safety Report 5849768-8 (Version None)
Quarter: 2008Q3

REPORT INFORMATION
  Report Type: 
  Country: None (occurrence: None)
  Receive Date: 20080819
  Receipt Date: 20080807
  Transmission Date: 20090109
  Serious: Yes (Other)
  Sender: FDA-Public Use
  Company Number: GB-MERCK-0808GBR00042B1

PATIENT
  Sex: Female
  Weight: 1 kg

DRUGS (7)
  1. DECADRON SRC [Suspect]
     Indication: MATERNAL THERAPY TO ENHANCE FOETAL LUNG MATURITY
     Route: 064
  2. CHLORPHENIRAMINE MALEATE [Suspect]
     Route: 064
  3. CYCLOSPORINE [Suspect]
     Route: 064
  4. GENTAMICIN [Suspect]
     Route: 064
  5. METRONIDAZOLE [Suspect]
     Route: 064
  6. MORPHINE [Suspect]
     Route: 064
  7. ACETAMINOPHEN [Suspect]
     Route: 064

REACTIONS (1)
  - PREMATURE BABY [None]
